FAERS Safety Report 9341833 (Version 3)
Quarter: 2013Q3

REPORT INFORMATION
  Report Type: Spontaneous
  Country: JP (occurrence: JP)
  Receive Date: 20130611
  Receipt Date: 20130730
  Transmission Date: 20140515
  Serious: Yes (Life-Threatening)
  Sender: FDA-Public Use
  Company Number: JP-AMGEN-JPNSP2013040737

PATIENT
  Age: 72 Year
  Sex: Male
  Weight: 60 kg

DRUGS (10)
  1. VECTIBIX [Suspect]
     Indication: COLON CANCER
     Dosage: 360 MG, Q2WK
     Route: 041
     Dates: start: 20130604, end: 20130604
  2. CALCIUM LEVOFOLINATE [Concomitant]
     Indication: COLON CANCER
     Dosage: 325 MG, UNK
     Route: 041
     Dates: start: 20130604, end: 20130604
  3. ANTIHISTAMINES [Concomitant]
     Indication: PREMEDICATION
     Dosage: UNK
     Route: 065
     Dates: start: 20130604, end: 20130604
  4. ALOXI [Concomitant]
     Indication: PREMEDICATION
     Dosage: 0.75 MG, QD
     Route: 041
     Dates: start: 20130604, end: 20130604
  5. DECADRON                           /00016002/ [Concomitant]
     Dosage: 6.6 MG, QD
     Route: 041
     Dates: start: 20130604, end: 20130604
  6. CALCICOL [Concomitant]
     Dosage: 10 ML, QD
     Route: 041
     Dates: start: 20130604, end: 20130604
  7. MAGNESIUM SULFATE [Concomitant]
     Dosage: 0.25 MOL, QD
     Route: 041
     Dates: start: 20130604, end: 20130604
  8. ELPLAT [Concomitant]
     Indication: COLON CANCER
     Dosage: 130 MG, QD
     Route: 041
     Dates: start: 20130604, end: 20130604
  9. 5-FU                               /00098801/ [Concomitant]
     Indication: COLON CANCER
     Dosage: 650 MG, UNK
     Route: 040
     Dates: start: 20130604, end: 20130604
  10. 5-FU                               /00098801/ [Concomitant]
     Dosage: 847 MG, UNK
     Route: 041
     Dates: start: 20130604, end: 20130605

REACTIONS (1)
  - Interstitial lung disease [Recovering/Resolving]
